FAERS Safety Report 21440405 (Version 1)
Quarter: 2022Q4

REPORT INFORMATION
  Report Type: Spontaneous
  Country: FR (occurrence: FR)
  Receive Date: 20221011
  Receipt Date: 20221011
  Transmission Date: 20230112
  Serious: Yes (Hospitalization)
  Sender: FDA-Public Use
  Company Number: None

PATIENT
  Age: 8 Year
  Sex: Female
  Weight: 29.6 kg

DRUGS (7)
  1. CYTARABINE [Suspect]
     Active Substance: CYTARABINE
     Indication: Acute lymphocytic leukaemia
     Dosage: 2 G; FREQ:12 H (COURSE D1: 2G/12H OVER 3HRS / COURSE D2 : 2G/12H OVER 3H)
     Route: 042
     Dates: start: 20220729, end: 20220730
  2. CYTARABINE [Suspect]
     Active Substance: CYTARABINE
     Dosage: 30 MG AT D5 OF THE COURSE
     Route: 037
     Dates: start: 20220803, end: 20220803
  3. VINCRISTINE [Suspect]
     Active Substance: VINCRISTINE
     Indication: Acute lymphocytic leukaemia
     Dosage: 1.5 MG, SINGLE (COURSE D1 : 1.5MG OVER 15 MINUTES)
     Route: 042
     Dates: start: 20220729, end: 20220729
  4. PREDNISOLONE [Suspect]
     Active Substance: PREDNISOLONE
     Indication: Acute lymphocytic leukaemia
     Dosage: 10 MG AT D5 OF THE COURSE
     Route: 037
     Dates: start: 20220803, end: 20220803
  5. DEXAMETHASONE [Suspect]
     Active Substance: DEXAMETHASONE
     Indication: Acute lymphocytic leukaemia
     Dosage: 10 MG, 2X/DAY (COURSE FROM D1 TO D5 AT 20MG/DAILY IN TWO INTAKES)
     Route: 042
     Dates: start: 20220729, end: 20220803
  6. METHOTREXATE SODIUM [Suspect]
     Active Substance: METHOTREXATE SODIUM
     Indication: Acute lymphocytic leukaemia
     Dosage: 12MG AT D5 OF THE COURSE
     Route: 037
     Dates: start: 20220803, end: 20220803
  7. PEGASPARGASE [Suspect]
     Active Substance: PEGASPARGASE
     Indication: Acute lymphocytic leukaemia
     Dosage: 1000 IU, SINGLE D4
     Route: 042
     Dates: start: 20220802, end: 20220802

REACTIONS (1)
  - Posterior reversible encephalopathy syndrome [Recovered/Resolved]

NARRATIVE: CASE EVENT DATE: 20220804
